FAERS Safety Report 5251948-X (Version None)
Quarter: 2007Q1

REPORT INFORMATION
  Report Type: 
  Country: None (occurrence: None)
  Receive Date: 20070223
  Receipt Date: 20070209
  Transmission Date: 20070707
  Serious: Yes (Other)
  Sender: FDA-Public Use
  Company Number: 2007000270

PATIENT

DRUGS (2)
  1. TARCEVA [Suspect]
     Dosage: UNK, ORAL
     Route: 048
  2. BEVACIZUMAB [Suspect]

REACTIONS (1)
  - SMALL INTESTINAL PERFORATION [None]
